FAERS Safety Report 6202644-3 (Version None)
Quarter: 2009Q2

REPORT INFORMATION
  Report Type: 
  Country: None (occurrence: None)
  Receive Date: 20090526
  Receipt Date: 20090515
  Transmission Date: 20091009
  Serious: Yes (Other)
  Sender: FDA-Public Use
  Company Number: GB-ELI_LILLY_AND_COMPANY-GB200903005120

PATIENT
  Sex: Female

DRUGS (2)
  1. CYMBALTA [Suspect]
     Dosage: 60 MG, UNKNOWN
     Route: 064
     Dates: start: 20080101, end: 20080101
  2. GABAPENTIN [Concomitant]
     Dosage: 200 MG, 2/D
     Route: 064
     Dates: start: 20080204, end: 20080325

REACTIONS (2)
  - DRUG EXPOSURE DURING PREGNANCY [None]
  - INGUINAL HERNIA [None]
